FAERS Safety Report 22323623 (Version 1)
Quarter: 2023Q2

REPORT INFORMATION
  Report Type: Spontaneous
  Country: US (occurrence: None)
  Receive Date: 20230512
  Receipt Date: 20230512
  Transmission Date: 20230721
  Serious: No
  Sender: FDA-Public Use
  Company Number: None

PATIENT
  Age: 71 Year
  Sex: Female

DRUGS (1)
  1. BUPROPION [Suspect]
     Active Substance: BUPROPION

REACTIONS (3)
  - Treatment failure [None]
  - Headache [None]
  - Paranasal sinus discomfort [None]

NARRATIVE: CASE EVENT DATE: 20230511
